FAERS Safety Report 21576269 (Version 1)
Quarter: 2022Q4

REPORT INFORMATION
  Report Type: Spontaneous
  Country: DE (occurrence: DE)
  Receive Date: 20221110
  Receipt Date: 20221110
  Transmission Date: 20230113
  Serious: Yes (Death, Other)
  Sender: FDA-Public Use
  Company Number: DE-BRISTOL-MYERS SQUIBB COMPANY-2022-134188

PATIENT
  Age: 77 Year
  Sex: Female

DRUGS (4)
  1. NIVOLUMAB [Suspect]
     Active Substance: NIVOLUMAB
     Indication: Metastatic renal cell carcinoma
     Route: 065
     Dates: start: 202003, end: 202205
  2. NIVOLUMAB [Suspect]
     Active Substance: NIVOLUMAB
     Dosage: DOSE : UNAV.;     FREQ : UNAV.
     Route: 065
     Dates: start: 202006, end: 20220727
  3. YERVOY [Suspect]
     Active Substance: IPILIMUMAB
     Indication: Metastatic renal cell carcinoma
     Route: 065
     Dates: start: 202003, end: 202005
  4. YERVOY [Suspect]
     Active Substance: IPILIMUMAB
     Route: 065
     Dates: start: 202206, end: 20220727

REACTIONS (1)
  - Death [Fatal]

NARRATIVE: CASE EVENT DATE: 20220829
